FAERS Safety Report 18911308 (Version 2)
Quarter: 2021Q1

REPORT INFORMATION
  Report Type: Spontaneous
  Country: US (occurrence: US)
  Receive Date: 20210218
  Receipt Date: 20210301
  Transmission Date: 20210420
  Serious: No
  Sender: FDA-Public Use
  Company Number: US-PFIZER INC-2021156657

PATIENT
  Age: 20 Year
  Sex: Male
  Weight: 98 kg

DRUGS (13)
  1. VENETOCLAX. [Concomitant]
     Active Substance: VENETOCLAX
     Indication: NEOPLASM MALIGNANT
     Dosage: 100 MG, 1X/DAY
     Route: 048
     Dates: start: 20201201, end: 20201201
  2. DECITABINE. [Concomitant]
     Active Substance: DECITABINE
     Dosage: UNK
  3. AZACITIDINE. [Concomitant]
     Active Substance: AZACITIDINE
     Dosage: UNK
     Dates: start: 20201102, end: 20201105
  4. DECITABINE. [Concomitant]
     Active Substance: DECITABINE
     Indication: MYELODYSPLASTIC SYNDROME
     Dosage: UNK
     Dates: start: 20190923, end: 20191213
  5. VENETOCLAX. [Concomitant]
     Active Substance: VENETOCLAX
     Dosage: 200 MG, 1X/DAY
     Route: 048
     Dates: start: 20201202, end: 20201202
  6. AZACITIDINE. [Concomitant]
     Active Substance: AZACITIDINE
     Indication: NEOPLASM MALIGNANT
     Dosage: 75 MG/M2
     Route: 042
     Dates: start: 20201204, end: 20201209
  7. AZACITIDINE. [Concomitant]
     Active Substance: AZACITIDINE
     Indication: MYELODYSPLASTIC SYNDROME
     Dosage: UNK
     Dates: start: 20200813, end: 20200924
  8. CEFEPIME HCL [Suspect]
     Active Substance: CEFEPIME HYDROCHLORIDE
     Indication: NEUTROPENIA
  9. VENETOCLAX. [Concomitant]
     Active Substance: VENETOCLAX
     Dosage: 400 MG, 1X/DAY
     Route: 048
     Dates: start: 20201203, end: 20210127
  10. DECITABINE. [Concomitant]
     Active Substance: DECITABINE
     Indication: NEOPLASM MALIGNANT
     Dosage: 20 MG/M2
     Route: 042
  11. CEFEPIME HCL [Suspect]
     Active Substance: CEFEPIME HYDROCHLORIDE
     Indication: ABDOMINAL PAIN
     Dosage: UNK
  12. CEFEPIME HCL [Suspect]
     Active Substance: CEFEPIME HYDROCHLORIDE
     Indication: PYREXIA
  13. FLUCONAZOLE. [Concomitant]
     Active Substance: FLUCONAZOLE
     Indication: PNEUMONIA FUNGAL
     Dosage: 400 MG, 1X/DAY
     Route: 048
     Dates: start: 20201125

REACTIONS (1)
  - No adverse event [Unknown]
